FAERS Safety Report 6583509-4 (Version None)
Quarter: 2010Q1

REPORT INFORMATION
  Report Type: 
  Country: None (occurrence: None)
  Receive Date: 20100216
  Receipt Date: 20100203
  Transmission Date: 20100710
  Serious: Yes (Other)
  Sender: FDA-Public Use
  Company Number: PHEH2010US01931

PATIENT
  Sex: Male
  Weight: 61 kg

DRUGS (4)
  1. NEORAL [Suspect]
     Indication: NEPHROTIC SYNDROME
     Dosage: 200 MG, BID
     Route: 048
     Dates: start: 20080101
  2. LASIX [Concomitant]
     Indication: SWELLING
     Dosage: DOSE INCREASED
     Route: 048
  3. LISINOPRIL [Concomitant]
     Indication: BLOOD PRESSURE INCREASED
     Dosage: UNK
     Route: 048
     Dates: start: 20070101
  4. INSULIN [Concomitant]
     Indication: DIABETES MELLITUS
     Dosage: UNK
     Dates: start: 20090101

REACTIONS (4)
  - EXPIRED DRUG ADMINISTERED [None]
  - FLUID RETENTION [None]
  - NEPHROTIC SYNDROME [None]
  - PROTEIN URINE [None]
